FAERS Safety Report 4886794-X (Version None)
Quarter: 2006Q1

REPORT INFORMATION
  Report Type: 
  Country: None (occurrence: None)
  Receive Date: 20060119
  Receipt Date: 20060119
  Transmission Date: 20060701
  Serious: Yes (Hospitalization)
  Sender: FDA-Public Use
  Company Number: None

PATIENT
  Age: 32 Year
  Sex: Female
  Weight: 100.7 kg

DRUGS (4)
  1. LAMICTAL [Suspect]
  2. FLUOXETINE HCL [Concomitant]
  3. TRAZODONE HCL [Concomitant]
  4. WELLBUTRIN SR [Concomitant]

REACTIONS (1)
  - RASH [None]
